FAERS Safety Report 20650190 (Version 1)
Quarter: 2022Q1

REPORT INFORMATION
  Report Type: Spontaneous
  Country: US (occurrence: US)
  Receive Date: 20220329
  Receipt Date: 20220329
  Transmission Date: 20220423
  Serious: No
  Sender: FDA-Public Use
  Company Number: US-AVEO ONCOLOGY-2022-AVEO-US000003

PATIENT

DRUGS (20)
  1. FOTIVDA [Suspect]
     Active Substance: TIVOZANIB HYDROCHLORIDE
     Indication: Renal cell carcinoma
     Dosage: 1.34 MG, 1 CAP PO DAILY FOR 21 DAYS ON/7 DAYS OFF
     Route: 048
     Dates: start: 20211218, end: 20220103
  2. DEXAMETHASONE [Concomitant]
     Active Substance: DEXAMETHASONE
  3. DUTASTERIDE [Concomitant]
     Active Substance: DUTASTERIDE
  4. FERROUS SULFATE [Concomitant]
     Active Substance: FERROUS SULFATE
  5. FLUDROCORTISONE ACETATE [Concomitant]
     Active Substance: FLUDROCORTISONE ACETATE
  6. HYDRALAZINE [Concomitant]
     Active Substance: HYDRALAZINE HYDROCHLORIDE
  7. INSULIN LISPRO [Concomitant]
     Active Substance: INSULIN LISPRO
  8. KLOR-CON [Concomitant]
     Active Substance: POTASSIUM CHLORIDE
  9. LANTUS [Concomitant]
     Active Substance: INSULIN GLARGINE
  10. LOSARTAN [Concomitant]
     Active Substance: LOSARTAN
  11. METOPROLOL SUCCINATE [Concomitant]
     Active Substance: METOPROLOL SUCCINATE
  12. OMEPRAZOLE [Concomitant]
     Active Substance: OMEPRAZOLE
  13. PRAVASTATIN [Concomitant]
     Active Substance: PRAVASTATIN
  14. ROCALTROL [Concomitant]
     Active Substance: CALCITRIOL
  15. TAMSULOSIN [Concomitant]
     Active Substance: TAMSULOSIN
  16. TORSEMIDE [Concomitant]
     Active Substance: TORSEMIDE
  17. VITAMIN D3 [Concomitant]
     Active Substance: CHOLECALCIFEROL
  18. XARELTO [Concomitant]
     Active Substance: RIVAROXABAN
  19. XGEVA [Concomitant]
     Active Substance: DENOSUMAB
  20. ZAROXOLYN [Concomitant]
     Active Substance: METOLAZONE

REACTIONS (2)
  - Blood pressure increased [Unknown]
  - Dysphonia [Unknown]
